FAERS Safety Report 15178142 (Version 2)
Quarter: 2019Q1

REPORT INFORMATION
  Report Type: Spontaneous
  Country: AU (occurrence: AU)
  Receive Date: 20180721
  Receipt Date: 20190306
  Transmission Date: 20190417
  Serious: Yes (Hospitalization, Other)
  Sender: FDA-Public Use
  Company Number: AU-ACCORD-069599

PATIENT
  Age: 56 Year
  Sex: Female
  Weight: 84 kg

DRUGS (3)
  1. ZOPICLONE [Suspect]
     Active Substance: ZOPICLONE
     Dosage: 10 TABLETS OF ZOPICLONE 7.5 MG
     Route: 048
  2. TRAMADOL. [Suspect]
     Active Substance: TRAMADOL
     Dosage: SIX TABLETS OF TRAMADOL SR 50 MG
     Route: 048
  3. METHOTREXATE. [Suspect]
     Active Substance: METHOTREXATE
     Indication: RHEUMATOID ARTHRITIS
     Dosage: 125 TABLETS OF METHOTREXATE 10 MG
     Route: 048

REACTIONS (10)
  - Mucosal inflammation [Unknown]
  - Bone marrow failure [Recovering/Resolving]
  - Pneumonia aspiration [Unknown]
  - Hypoxia [Recovered/Resolved]
  - Hepatic enzyme increased [Unknown]
  - Intentional overdose [Unknown]
  - Abdominal pain [Unknown]
  - Diarrhoea [Unknown]
  - Sedation [Recovered/Resolved]
  - Mucosal ulceration [Unknown]
